FAERS Safety Report 10396152 (Version 1)
Quarter: 2014Q3

REPORT INFORMATION
  Report Type: Spontaneous
  Country: FR (occurrence: FR)
  Receive Date: 20140820
  Receipt Date: 20140820
  Transmission Date: 20150326
  Serious: Yes (Death)
  Sender: FDA-Public Use
  Company Number: FR-SA-2014SA108908

PATIENT
  Age: 56 Year
  Sex: Male

DRUGS (11)
  1. NOREPINEPHRINE [Concomitant]
     Active Substance: NOREPINEPHRINE\NOREPINEPHRINE BITARTRATE
  2. KARDEGIC [Suspect]
     Active Substance: ASPIRIN LYSINE
     Indication: ACUTE CORONARY SYNDROME
     Route: 048
     Dates: start: 201406, end: 20140723
  3. PLAVIX [Suspect]
     Active Substance: CLOPIDOGREL BISULFATE
     Indication: ACUTE CORONARY SYNDROME
     Route: 048
     Dates: start: 201406, end: 20140723
  4. CORDARONE [Concomitant]
     Active Substance: AMIODARONE HYDROCHLORIDE
     Dates: start: 201406, end: 20140723
  5. PREVISCAN [Suspect]
     Active Substance: FLUINDIONE
     Indication: ACUTE CORONARY SYNDROME
     Route: 048
     Dates: start: 20140623, end: 20140723
  6. INEXIUM [Concomitant]
     Active Substance: ESOMEPRAZOLE
     Dosage: STRENGTH: 20MG
     Route: 048
     Dates: start: 201406, end: 20140723
  7. ROCEPHIN [Concomitant]
     Active Substance: CEFTRIAXONE SODIUM
     Indication: LUNG DISORDER
  8. DOLIPRANE [Concomitant]
     Active Substance: ACETAMINOPHEN
     Dosage: STRENGTH: 1000MG
     Dates: start: 201406, end: 20140723
  9. TAHOR [Concomitant]
     Active Substance: ATORVASTATIN CALCIUM
     Dosage: STRENGTH: 10MG
     Route: 048
     Dates: start: 201406, end: 20140723
  10. LASILIX [Concomitant]
     Active Substance: FUROSEMIDE
     Dosage: STRENGTH: 40 MG?FORM: COMPRIME  SECABLE
     Route: 048
     Dates: start: 201406, end: 20140723
  11. CARDENSIEL [Concomitant]
     Active Substance: BISOPROLOL FUMARATE
     Dosage: STRENGTH: 1.25MG
     Route: 048
     Dates: start: 201406, end: 20140723

REACTIONS (2)
  - Cerebral haematoma [Fatal]
  - Somnolence [Fatal]

NARRATIVE: CASE EVENT DATE: 20140723
